FAERS Safety Report 5231188-0 (Version None)
Quarter: 2007Q1

REPORT INFORMATION
  Report Type: 
  Country: None (occurrence: None)
  Receive Date: 20070202
  Receipt Date: 20070116
  Transmission Date: 20070707
  Serious: Yes (Hospitalization, Other)
  Sender: FDA-Public Use
  Company Number: 012755

PATIENT
  Age: 55 Year
  Sex: Male

DRUGS (5)
  1. PRIALT [Suspect]
     Indication: PAIN
     Dosage: SEE IMAGE
     Route: 037
     Dates: start: 20050101, end: 20061201
  2. PRIALT [Suspect]
     Indication: PAIN
     Dosage: SEE IMAGE
     Route: 037
     Dates: start: 20061201
  3. CARVEDILOL [Concomitant]
  4. WARFARIN SODIUM [Concomitant]
  5. MULTIVITAMIN [Concomitant]

REACTIONS (10)
  - CATHETER RELATED COMPLICATION [None]
  - CONDITION AGGRAVATED [None]
  - DEVICE MALFUNCTION [None]
  - DYSGEUSIA [None]
  - HALLUCINATION [None]
  - MIDDLE INSOMNIA [None]
  - ORAL FUNGAL INFECTION [None]
  - PAIN [None]
  - PARAESTHESIA ORAL [None]
  - TRANSIENT ISCHAEMIC ATTACK [None]
